FAERS Safety Report 5449658-9 (Version None)
Quarter: 2007Q3

REPORT INFORMATION
  Report Type: 
  Country: None (occurrence: None)
  Receive Date: 20070910
  Receipt Date: 20070831
  Transmission Date: 20080115
  Serious: Yes (Other)
  Sender: FDA-Public Use
  Company Number: SPV1-2007-04001

PATIENT
  Sex: Male

DRUGS (2)
  1. ANAGRELIDE HYDROCHLORIDE [Suspect]
  2. HYDROXYUREA [Suspect]

REACTIONS (1)
  - SQUAMOUS CELL CARCINOMA OF SKIN [None]
